FAERS Safety Report 5891580-8 (Version None)
Quarter: 2008Q3

REPORT INFORMATION
  Report Type: 
  Country: None (occurrence: None)
  Receive Date: 20080922
  Receipt Date: 20080909
  Transmission Date: 20090109
  Serious: Yes (Hospitalization, Other)
  Sender: FDA-Public Use
  Company Number: CA-ROCHE-566674

PATIENT
  Sex: Male

DRUGS (4)
  1. XELODA [Suspect]
     Indication: COLORECTAL CANCER METASTATIC
     Route: 048
     Dates: start: 20080212
  2. AVASTIN [Suspect]
     Indication: COLORECTAL CANCER METASTATIC
     Route: 042
     Dates: start: 20071024
  3. OXALIPLATIN [Suspect]
     Route: 042
     Dates: start: 20080212, end: 20080514
  4. IRINOTECAN HCL [Concomitant]
     Indication: COLORECTAL CANCER METASTATIC
     Dates: end: 20080601

REACTIONS (5)
  - BACK PAIN [None]
  - BACTERAEMIA [None]
  - BLOOD URINE PRESENT [None]
  - RENAL FAILURE ACUTE [None]
  - URINARY TRACT INFECTION [None]
